FAERS Safety Report 4386220-3 (Version None)
Quarter: 2004Q2

REPORT INFORMATION
  Report Type: 
  Country: None (occurrence: None)
  Receive Date: 20040623
  Receipt Date: 20040614
  Transmission Date: 20050107
  Serious: Yes (Other)
  Sender: FDA-Public Use
  Company Number: 2004-06-0767

PATIENT
  Age: 23 Year
  Sex: Male
  Weight: 140 kg

DRUGS (5)
  1. BETAMETHASONE [Suspect]
     Dosage: 1 MG ORAL
     Route: 048
     Dates: start: 20040613, end: 20040613
  2. DOLOMO TABLETS [Suspect]
     Dosage: 18 TABLETS ORAL
     Route: 048
     Dates: start: 20040613, end: 20040613
  3. DOXEPIN HCL [Suspect]
     Dosage: 250 MG ORAL
     Route: 048
     Dates: start: 20040613, end: 20040613
  4. LOPERAMIDE [Suspect]
     Dosage: 20 MG ORAL
     Route: 048
     Dates: start: 20040613, end: 20040613
  5. ALCOHOL ORAL NOT OTHERWISE SPECIFIED [Suspect]
     Dates: start: 20040613, end: 20040613

REACTIONS (4)
  - ALCOHOL USE [None]
  - INTENTIONAL OVERDOSE [None]
  - MULTIPLE DRUG OVERDOSE [None]
  - SUICIDE ATTEMPT [None]
